FAERS Safety Report 13494296 (Version 1)
Quarter: 2017Q2

REPORT INFORMATION
  Report Type: Spontaneous
  Country: MX (occurrence: MX)
  Receive Date: 20170428
  Receipt Date: 20170428
  Transmission Date: 20170830
  Serious: Yes (Hospitalization, Other)
  Sender: FDA-Public Use
  Company Number: MX-ROCHE-1922195

PATIENT
  Age: 48 Year
  Sex: Female

DRUGS (6)
  1. DOCETAXEL. [Concomitant]
     Active Substance: DOCETAXEL
     Indication: HER-2 POSITIVE BREAST CANCER
     Dosage: 6 CYCLES
     Route: 065
  2. DOXORUBICIN [Concomitant]
     Active Substance: DOXORUBICIN
  3. PERTUZUMAB [Suspect]
     Active Substance: PERTUZUMAB
     Indication: HER-2 POSITIVE BREAST CANCER
     Dosage: 6 CYCLES
     Route: 065
  4. CYCLOPHOSPHAMIDE. [Concomitant]
     Active Substance: CYCLOPHOSPHAMIDE
  5. TRASTUZUMAB [Suspect]
     Active Substance: TRASTUZUMAB
     Indication: HER-2 POSITIVE BREAST CANCER
     Dosage: 6 CYCLES
     Route: 065
  6. CARBOPLATIN. [Concomitant]
     Active Substance: CARBOPLATIN
     Indication: HER-2 POSITIVE BREAST CANCER
     Dosage: 6 CYCLES
     Route: 065

REACTIONS (7)
  - Fungal test positive [Unknown]
  - Diarrhoea [Recovering/Resolving]
  - Neutropenia [Not Recovered/Not Resolved]
  - Hypotension [Not Recovered/Not Resolved]
  - Weight decreased [Not Recovered/Not Resolved]
  - Colitis [Unknown]
  - Dehydration [Not Recovered/Not Resolved]

NARRATIVE: CASE EVENT DATE: 201702
